FAERS Safety Report 15821475 (Version 1)
Quarter: 2019Q1

REPORT INFORMATION
  Report Type: Report from Study
  Country: US (occurrence: US)
  Receive Date: 20190114
  Receipt Date: 20190114
  Transmission Date: 20190417
  Serious: Yes (Hospitalization, Other)
  Sender: FDA-Public Use
  Company Number: US-HORIZON-PRE-0008-2019

PATIENT
  Age: 87 Year
  Sex: Male

DRUGS (3)
  1. PREDNISONE. [Suspect]
     Active Substance: PREDNISONE
     Indication: PAIN
  2. AT13387 [Suspect]
     Active Substance: ONALESPIB
     Indication: DIFFUSE LARGE B-CELL LYMPHOMA
     Dosage: 160 MG/M2 (TOTAL DOSE: 681.564 MG) OVER 1 HOUR ON DAYS 1, 2, 8, 9, 15 AND 16
     Route: 042
     Dates: start: 20181108, end: 20181109
  3. MORPHINE [Suspect]
     Active Substance: MORPHINE
     Indication: PAIN

REACTIONS (4)
  - Pain [Unknown]
  - Muscular weakness [Unknown]
  - Delirium [Unknown]
  - Back pain [Unknown]

NARRATIVE: CASE EVENT DATE: 20181110
